FAERS Safety Report 5601109-7 (Version None)
Quarter: 2008Q1

REPORT INFORMATION
  Report Type: 
  Country: None (occurrence: None)
  Receive Date: 20080118
  Receipt Date: 20080114
  Transmission Date: 20080703
  Serious: Yes (Death, Life-Threatening)
  Sender: FDA-Public Use
  Company Number: GXKR2007DE03773

PATIENT
  Age: 38 Year
  Sex: Male
  Weight: 110 kg

DRUGS (4)
  1. IBUHEXAL (NGX)(IBUPROFEN) FILM-COATED TABLET, 400MG [Suspect]
     Indication: PHARYNGOLARYNGEAL PAIN
     Dosage: 400 MG, ONCE/SINGLE IN THE EVENING, ORAL
     Route: 048
     Dates: start: 20070407, end: 20070407
  2. WICK MEDINAIT(DEXTROMETHORPHAN HYDROBROMIDE, DOXYLAMINE SUCCINATE, EPH [Suspect]
     Indication: PHARYNGOLARYNGEAL PAIN
     Dosage: 30 ML, QD IN THE EVENING, ORAL
     Route: 048
     Dates: start: 20070407, end: 20070407
  3. DOLO-DOBENDAN(BENZOCAINE, CETYLPYRIDINIUM CHLORIDE) [Suspect]
     Indication: PHARYNGOLARYNGEAL PAIN
     Dosage: 7 TABLETS, ORAL
     Route: 048
     Dates: start: 20070407, end: 20070407
  4. MALLEBRIN(HEXETIDINE) [Suspect]
     Indication: PHARYNGOLARYNGEAL PAIN
     Dosage: 5 ML, QD, ORAL
     Route: 048
     Dates: start: 20070407, end: 20070407

REACTIONS (8)
  - ANAPHYLACTIC SHOCK [None]
  - BRAIN DEATH [None]
  - HYPOXIC ENCEPHALOPATHY [None]
  - ISCHAEMIC HEPATITIS [None]
  - LARYNGEAL OEDEMA [None]
  - MYOCARDIAL ISCHAEMIA [None]
  - RESPIRATORY FAILURE [None]
  - RESUSCITATION [None]
